FAERS Safety Report 22310185 (Version 2)
Quarter: 2023Q2

REPORT INFORMATION
  Report Type: Report from Study
  Country: IT (occurrence: IT)
  Receive Date: 20230511
  Receipt Date: 20230616
  Transmission Date: 20230721
  Serious: Yes (Hospitalization, Other)
  Sender: FDA-Public Use
  Company Number: None

PATIENT
  Age: 7 Year
  Sex: Female
  Weight: 25 kg

DRUGS (2)
  1. VINCRISTINE SULFATE [Suspect]
     Active Substance: VINCRISTINE SULFATE
     Indication: Nephroblastoma
     Dosage: 1.35 MG/DAY ON 03/20 AND 03/27/23
     Route: 065
     Dates: start: 20230320, end: 20230327
  2. IRINOTECAN [Suspect]
     Active Substance: IRINOTECAN
     Indication: Nephroblastoma
     Dosage: 17. 94 MG/DAY ON 03/20, 23, 30, AND 31/23.
     Route: 065
     Dates: start: 20230320, end: 20230331

REACTIONS (8)
  - Pancytopenia [Recovered/Resolved]
  - Neutropenia [Recovered/Resolved]
  - Pyrexia [Recovered/Resolved]
  - Hypogammaglobulinaemia [Unknown]
  - Pain in extremity [Recovering/Resolving]
  - Diarrhoea [Recovered/Resolved]
  - Vomiting [Recovered/Resolved]
  - Asthenia [Recovered/Resolved]

NARRATIVE: CASE EVENT DATE: 20230323
